FAERS Safety Report 12308888 (Version 1)
Quarter: 2016Q2

REPORT INFORMATION
  Report Type: Spontaneous
  Country: US (occurrence: None)
  Receive Date: 20160426
  Receipt Date: 20160426
  Transmission Date: 20160815
  Serious: Yes (Life-Threatening, Other)
  Sender: FDA-Public Use
  Company Number: None

PATIENT
  Age: 56 Year
  Sex: Female
  Weight: 108.41 kg

DRUGS (12)
  1. LANTUS [Concomitant]
     Active Substance: INSULIN GLARGINE
  2. ADVIL LIQI-GELS [Concomitant]
  3. AZOTHIAPRINE [Concomitant]
  4. HUMALOG [Concomitant]
     Active Substance: INSULIN LISPRO
  5. 12HR SUPHAFED [Concomitant]
  6. CALCIUM [Concomitant]
     Active Substance: CALCIUM
  7. LYRICA [Concomitant]
     Active Substance: PREGABALIN
  8. VITAMIN B12 [Concomitant]
     Active Substance: CYANOCOBALAMIN
  9. MAGNESIUM [Concomitant]
     Active Substance: MAGNESIUM
  10. LEVOFLOXACIN, 500 MG ZYDUS [Suspect]
     Active Substance: LEVOFLOXACIN
     Indication: SINUSITIS
     Route: 048
     Dates: start: 20160107, end: 20160118
  11. SINGULAIR [Concomitant]
     Active Substance: MONTELUKAST SODIUM
  12. GABAPENTIN. [Concomitant]
     Active Substance: GABAPENTIN

REACTIONS (10)
  - Vein disorder [None]
  - Asthenia [None]
  - Tremor [None]
  - Insomnia [None]
  - Muscular weakness [None]
  - Diarrhoea [None]
  - Arthropathy [None]
  - Impaired quality of life [None]
  - Fatigue [None]
  - Depression [None]

NARRATIVE: CASE EVENT DATE: 20160107
